FAERS Safety Report 24310277 (Version 3)
Quarter: 2024Q4

REPORT INFORMATION
  Report Type: Report from Study
  Country: US (occurrence: US)
  Receive Date: 20240912
  Receipt Date: 20241229
  Transmission Date: 20250114
  Serious: Yes (Other)
  Sender: ABBVIE
  Company Number: US-ABBVIE-5915826

PATIENT
  Age: 64 Year
  Sex: Male

DRUGS (1)
  1. RINVOQ [Suspect]
     Active Substance: UPADACITINIB
     Indication: Psoriatic arthropathy
     Route: 048
     Dates: start: 20240226

REACTIONS (3)
  - Toe operation [Recovering/Resolving]
  - Knee arthroplasty [Recovered/Resolved]
  - Conjunctival scar [Recovered/Resolved]

NARRATIVE: CASE EVENT DATE: 20240101
